FAERS Safety Report 7277761 (Version 5)
Quarter: 2015Q1

REPORT INFORMATION
  Report Type: Report from Study
  Country: JP (occurrence: JP)
  Receive Date: 20100212
  Receipt Date: 20150313
  Transmission Date: 20150721
  Serious: Yes (Hospitalization)
  Sender: FDA-Public Use
  Company Number: JP-PFIZER INC-2010011101

PATIENT
  Age: 61 Year
  Sex: Female
  Weight: 43 kg

DRUGS (12)
  1. PREDONINE [Suspect]
     Active Substance: PREDNISOLONE\PREDNISOLONE ACETATE\PREDNISOLONE SODIUM SUCCINATE
     Indication: RHEUMATOID ARTHRITIS
     Dosage: 5 MG, DAILY, AFTER BREAKFAST
     Route: 048
     Dates: start: 20080804
  2. LORFENAMIN [Concomitant]
     Active Substance: LOXOPROFEN
     Indication: RHEUMATOID ARTHRITIS
     Dosage: 60 MG, 2X/DAY, AFTER BREAKFAST AND DINNER
     Route: 048
     Dates: start: 20080117
  3. TOFACITINIB CITRATE [Suspect]
     Active Substance: TOFACITINIB CITRATE
     Indication: RHEUMATOID ARTHRITIS
     Dosage: 5 MG, 2X/DAY
     Route: 048
     Dates: start: 20080805, end: 20100125
  4. SELBEX [Concomitant]
     Active Substance: TEPRENONE
     Indication: PROPHYLAXIS AGAINST GASTROINTESTINAL ULCER
     Dosage: 80 MG, 2X/DAY, AFTER BREAKFAST AND DINNER
     Route: 048
     Dates: start: 20080117
  5. HYALEIN [Concomitant]
     Active Substance: HYALURONATE SODIUM
     Indication: DRY EYE
     Dosage: UNK, 3X/DAY FOR BOTH EYES
     Route: 047
     Dates: start: 20080602
  6. GASTER [Concomitant]
     Active Substance: FAMOTIDINE
     Indication: PROPHYLAXIS AGAINST GASTROINTESTINAL ULCER
     Dosage: 20 MG, DAILY, AFTER DINNER
     Route: 048
     Dates: start: 20040520
  7. PREDNISOLONE. [Suspect]
     Active Substance: PREDNISOLONE
     Indication: RHEUMATOID ARTHRITIS
     Dosage: 2 MG, DAILY AFTER DINNER
     Route: 048
     Dates: start: 20081117
  8. METOLATE [Suspect]
     Active Substance: METHOTREXATE
     Indication: RHEUMATOID ARTHRITIS
     Dosage: 2 MG, 2X/DAY,2-DAY A WEEK, AFTER BREAKFAST AND DINNER
     Route: 048
     Dates: start: 20071217, end: 20100125
  9. FOLIAMIN [Concomitant]
     Active Substance: FOLIC ACID
     Indication: PROPHYLAXIS
     Dosage: 5 MG, DAILY AFTER BREAKFAST
     Route: 048
     Dates: start: 20071217, end: 20100125
  10. BENET [Concomitant]
     Active Substance: RISEDRONATE SODIUM
     Indication: OSTEOPOROSIS
     Dosage: 2.5 MG, DAILY, AT THE TIME OF AWAKENING
     Route: 048
     Dates: start: 20040401
  11. MAGNESIUM OXIDE. [Concomitant]
     Active Substance: MAGNESIUM OXIDE
     Indication: CONSTIPATION
     Dosage: 0.5 G, 3X/DAY, AFTER EACH MEAL
     Route: 048
     Dates: start: 20091026
  12. LAC B [Concomitant]
     Active Substance: BIFIDOBACTERIUM SPP.
     Indication: ABDOMINAL PAIN
     Dosage: 1 G, 3X/DAY, AFTER EACH MEAL
     Route: 048
     Dates: start: 20091221, end: 20100125

REACTIONS (1)
  - Herpes zoster [Recovered/Resolved]

NARRATIVE: CASE EVENT DATE: 20100113
